FAERS Safety Report 17791817 (Version 4)
Quarter: 2020Q2

REPORT INFORMATION
  Report Type: Spontaneous
  Country: DE (occurrence: DE)
  Receive Date: 20200515
  Receipt Date: 20200625
  Transmission Date: 20200714
  Serious: Yes (Hospitalization)
  Sender: FDA-Public Use
  Company Number: DE-ROCHE-2599065

PATIENT
  Age: 13 Year
  Sex: Female
  Weight: 97 kg

DRUGS (4)
  1. MABTHERA [Suspect]
     Active Substance: RITUXIMAB
     Indication: MICROSCOPIC POLYANGIITIS
     Route: 058
     Dates: start: 20190702, end: 20190702
  2. NITRENDIPINE [Concomitant]
     Active Substance: NITRENDIPINE
     Indication: CHRONIC KIDNEY DISEASE
     Dosage: 10MG
     Route: 048
  3. LORZAAR [Concomitant]
     Active Substance: LOSARTAN
     Indication: CHRONIC KIDNEY DISEASE
     Dosage: 37.5MG
     Route: 048
  4. CELLCEPT [Suspect]
     Active Substance: MYCOPHENOLATE MOFETIL\MYCOPHENOLATE MOFETIL HYDROCHLORIDE
     Indication: MICROSCOPIC POLYANGIITIS
     Dosage: 1750 MG (1000-0-750 MG)?REDUCED TO 750-0-750 MG
     Route: 048
     Dates: start: 2016

REACTIONS (4)
  - C-reactive protein increased [Unknown]
  - Myalgia [Unknown]
  - Infection [Unknown]
  - General physical health deterioration [Unknown]

NARRATIVE: CASE EVENT DATE: 20190710
